FAERS Safety Report 9913954 (Version 2)
Quarter: 2014Q1

REPORT INFORMATION
  Report Type: Report from Study
  Country: DE (occurrence: CL)
  Receive Date: 20140220
  Receipt Date: 20140225
  Transmission Date: 20141002
  Serious: Yes (Hospitalization)
  Sender: FDA-Public Use
  Company Number: DE-ACTELION-A-NJ2014-95031

PATIENT
  Age: 33 Year
  Sex: Female

DRUGS (13)
  1. VENTAVIS [Suspect]
     Indication: PULMONARY HYPERTENSION
     Dosage: UNK
     Route: 055
     Dates: start: 201310
  2. TRACLEER [Concomitant]
     Indication: PULMONARY HYPERTENSION
     Dosage: UNK
     Route: 048
  3. SILDENAFIL [Concomitant]
  4. HYDROCHLOROTHIAZIDE [Concomitant]
  5. NURIBAN A [Concomitant]
  6. SPIRONOLACTONE [Concomitant]
  7. COUMADIN [Concomitant]
  8. FOLIC ACID [Concomitant]
  9. TOL-12 [Concomitant]
  10. OMEPRAZOLE [Concomitant]
  11. ESCITALOPRAM [Concomitant]
  12. BERODUAL [Concomitant]
     Dosage: UNK
     Dates: start: 20140213
  13. CODEINE [Concomitant]
     Dosage: UNK
     Dates: start: 20140213

REACTIONS (5)
  - Respiratory tract infection [Recovering/Resolving]
  - Chest pain [Recovering/Resolving]
  - Dyspnoea [Recovering/Resolving]
  - Atrial fibrillation [Recovering/Resolving]
  - Hypoperfusion [Recovering/Resolving]
